FAERS Safety Report 23837541 (Version 5)
Quarter: 2024Q4

REPORT INFORMATION
  Report Type: Spontaneous
  Country: BE (occurrence: BE)
  Receive Date: 20240509
  Receipt Date: 20241108
  Transmission Date: 20250115
  Serious: Yes (Hospitalization)
  Sender: FRESENIUS KABI
  Company Number: BE-GILEAD-2024-0668536

PATIENT
  Sex: Female
  Weight: 50.5 kg

DRUGS (65)
  1. PEMETREXED [Suspect]
     Active Substance: PEMETREXED
     Indication: Non-small cell lung cancer metastatic
     Dosage: 750 MG?FOA-INJECTION
     Dates: start: 20240111, end: 20240221
  2. PEMETREXED [Suspect]
     Active Substance: PEMETREXED
     Dosage: UNK?FOA-INJECTION
     Dates: start: 20240320, end: 20240320
  3. PEMETREXED [Suspect]
     Active Substance: PEMETREXED
     Dosage: 750 MG?FOA-INJECTION
     Dates: start: 20240111, end: 20240111
  4. PEMETREXED [Suspect]
     Active Substance: PEMETREXED
     Dosage: 750 MG?FOA-INJECTION
     Dates: start: 20240131, end: 20240131
  5. PEMETREXED [Suspect]
     Active Substance: PEMETREXED
     Dosage: 750 MG?FOA-INJECTION
     Dates: start: 20240221, end: 20240221
  6. ZIMBERELIMAB [Suspect]
     Active Substance: ZIMBERELIMAB
     Indication: Non-small cell lung cancer metastatic
     Dosage: 360 MG?FOA-SOLUTION FOR INFUSION
     Dates: start: 20240111, end: 20240221
  7. ZIMBERELIMAB [Suspect]
     Active Substance: ZIMBERELIMAB
     Dosage: 360 MG?FOA-SOLUTION FOR INFUSION
     Dates: start: 20240111, end: 20240111
  8. ZIMBERELIMAB [Suspect]
     Active Substance: ZIMBERELIMAB
     Dosage: 360 MG?FOA-SOLUTION FOR INFUSION
     Dates: start: 20240131, end: 20240131
  9. ZIMBERELIMAB [Suspect]
     Active Substance: ZIMBERELIMAB
     Dosage: 360 MG?FOA-SOLUTION FOR INFUSION
     Dates: start: 20240221, end: 20240221
  10. ZIMBERELIMAB [Suspect]
     Active Substance: ZIMBERELIMAB
     Dosage: 360 MG?FOA-SOLUTION FOR INFUSION
     Dates: start: 20240320, end: 20240320
  11. CISPLATIN [Suspect]
     Active Substance: CISPLATIN
     Indication: Non-small cell lung cancer metastatic
     Dosage: 110 MG?FOA-CONCENTRATE FOR SOLUTION FOR INJECTION/INFUSION
     Route: 042
     Dates: start: 20240131, end: 20240131
  12. CISPLATIN [Suspect]
     Active Substance: CISPLATIN
     Dosage: 110 MG?FOA-CONCENTRATE FOR SOLUTION FOR INJECTION/INFUSION
     Route: 042
     Dates: start: 20240111, end: 20240111
  13. CISPLATIN [Suspect]
     Active Substance: CISPLATIN
     Dosage: 110 MG?FOA-CONCENTRATE FOR SOLUTION FOR INJECTION/INFUSION
     Route: 042
     Dates: start: 20240221, end: 20240221
  14. CISPLATIN [Suspect]
     Active Substance: CISPLATIN
     Dosage: UNK?FOA-CONCENTRATE FOR SOLUTION FOR INJECTION/INFUSION
     Route: 042
     Dates: start: 20240320, end: 20240320
  15. CISPLATIN [Suspect]
     Active Substance: CISPLATIN
     Dosage: 110 MG?FOA-CONCENTRATE FOR SOLUTION FOR INJECTION/INFUSION
     Route: 042
     Dates: start: 20240111, end: 20240221
  16. BECLOMETHASONE DIPROPIONATE\FORMOTEROL FUMARATE [Concomitant]
     Active Substance: BECLOMETHASONE DIPROPIONATE\FORMOTEROL FUMARATE
     Indication: Dyspnoea
     Route: 055
     Dates: start: 20231101
  17. ESCITALOPRAM [Concomitant]
     Active Substance: ESCITALOPRAM OXALATE
     Indication: Depression
     Dates: start: 20231111, end: 20240429
  18. ESCITALOPRAM [Concomitant]
     Active Substance: ESCITALOPRAM OXALATE
     Indication: Depression
     Dates: start: 20231111, end: 20240429
  19. PANTOPRAZOLE [Concomitant]
     Active Substance: PANTOPRAZOLE
     Indication: Prophylaxis
     Dates: start: 20231128
  20. POLYETHYLENE GLYCOLS [Concomitant]
     Active Substance: POLYETHYLENE GLYCOLS
     Indication: Prophylaxis
     Dates: start: 20231214
  21. IBUPROFEN [Concomitant]
     Active Substance: IBUPROFEN
     Indication: Chest pain
     Dates: start: 20231215, end: 20240312
  22. IBUPROFEN [Concomitant]
     Active Substance: IBUPROFEN
     Dates: start: 20231215, end: 20240312
  23. FOLIC ACID [Concomitant]
     Active Substance: FOLIC ACID
     Indication: Prophylaxis
     Dates: start: 20231220
  24. VITAMIN B12 [Concomitant]
     Active Substance: CYANOCOBALAMIN
     Indication: Prophylaxis
     Dates: start: 20231220
  25. DAFALGAN [Concomitant]
     Active Substance: ACETAMINOPHEN
     Indication: Chest pain
     Dates: start: 20231221
  26. PRIMPERAN [Concomitant]
     Active Substance: METOCLOPRAMIDE HYDROCHLORIDE
     Indication: Prophylaxis
     Dates: start: 20231226
  27. TRAMADOL HYDROCHLORIDE [Concomitant]
     Active Substance: TRAMADOL HYDROCHLORIDE
     Indication: Chest pain
     Dates: start: 20231226
  28. ZOLPIDEM [Concomitant]
     Active Substance: ZOLPIDEM TARTRATE
     Indication: Prophylaxis
     Dates: start: 20231226
  29. DEXAMETHASONE [Concomitant]
     Active Substance: DEXAMETHASONE
     Indication: Prophylaxis
     Dates: start: 20240109
  30. AKYNZEO (NETUPITANT\PALONOSETRON HYDROCHLORIDE) [Concomitant]
     Active Substance: NETUPITANT\PALONOSETRON HYDROCHLORIDE
     Indication: Prophylaxis
     Dates: start: 20240111
  31. ALIZAPRIDE HYDROCHLORIDE [Concomitant]
     Active Substance: ALIZAPRIDE HYDROCHLORIDE
     Indication: Prophylaxis
     Dates: start: 20240111
  32. SOLU-MEDROL [Concomitant]
     Active Substance: METHYLPREDNISOLONE SODIUM SUCCINATE
     Indication: Prophylaxis
     Dates: start: 20240111
  33. OLODATEROL HYDROCHLORIDE\TIOTROPIUM BROMIDE MONOHYDRATE [Concomitant]
     Active Substance: OLODATEROL HYDROCHLORIDE\TIOTROPIUM BROMIDE MONOHYDRATE
     Indication: Dyspnoea
     Dates: start: 20240117
  34. TRAMADOL HYDROCHLORIDE [Concomitant]
     Active Substance: TRAMADOL HYDROCHLORIDE
     Indication: Chest pain
     Dates: start: 20240117
  35. TRAMADOL HYDROCHLORIDE [Concomitant]
     Active Substance: TRAMADOL HYDROCHLORIDE
     Route: 048
     Dates: start: 20231226
  36. XANAX [Concomitant]
     Active Substance: ALPRAZOLAM
     Indication: Depression
     Dates: start: 20240117, end: 20240428
  37. XANAX [Concomitant]
     Active Substance: ALPRAZOLAM
     Dates: start: 20240117, end: 20240428
  38. OXYCODONE HYDROCHLORIDE [Concomitant]
     Active Substance: OXYCODONE HYDROCHLORIDE
     Indication: Chest pain
     Dates: start: 20240121
  39. INNOHEP [Concomitant]
     Active Substance: TINZAPARIN SODIUM
     Indication: Pulmonary embolism
     Dates: start: 20240219
  40. INNOHEP [Concomitant]
     Active Substance: TINZAPARIN SODIUM
     Dates: start: 20240313
  41. VENTOLIN [Concomitant]
     Active Substance: ALBUTEROL SULFATE
     Indication: Dyspnoea
     Route: 055
     Dates: start: 20240221
  42. ARANESP [Concomitant]
     Active Substance: DARBEPOETIN ALFA
     Indication: Anaemia
     Dates: start: 20240313
  43. LEVOTHYROXINE [Concomitant]
     Active Substance: LEVOTHYROXINE
     Indication: Hypothyroidism
     Dates: start: 20240313
  44. LEVOTHYROXINE [Concomitant]
     Active Substance: LEVOTHYROXINE
     Dates: start: 20240313, end: 20240429
  45. OPTICROM [Concomitant]
     Active Substance: CROMOLYN SODIUM
     Indication: Conjunctivitis
     Route: 047
     Dates: start: 20240313
  46. TERRA-CORTRIL [HYDROCORTISONE;OXYTETRACYCLINE HYDROCHLORIDE] [Concomitant]
     Indication: Conjunctivitis
     Route: 047
     Dates: start: 20240313
  47. KALIUM-R [Concomitant]
     Indication: Hypokalaemia
     Dates: start: 20240413
  48. KCL [Concomitant]
     Active Substance: POTASSIUM CHLORIDE
     Indication: Hypokalaemia
     Dates: start: 20240313, end: 20240313
  49. KCL [Concomitant]
     Active Substance: POTASSIUM CHLORIDE
     Dates: start: 20240331, end: 20240410
  50. KCL [Concomitant]
     Active Substance: POTASSIUM CHLORIDE
     Dates: start: 20240330, end: 20240410
  51. PLATELETS [Concomitant]
     Active Substance: HUMAN PLATELET, ALLOGENIC
     Indication: Platelet count decreased
  52. PLATELETS [Concomitant]
     Active Substance: HUMAN PLATELET, ALLOGENIC
     Route: 042
  53. PLATELETS [Concomitant]
     Active Substance: HUMAN PLATELET, ALLOGENIC
     Route: 042
  54. AERIUS (DESLORATADINE) [Concomitant]
     Active Substance: DESLORATADINE
     Indication: Prophylaxis
     Dates: start: 20240313
  55. FELDENE [Concomitant]
     Active Substance: PIROXICAM
     Indication: Chest pain
     Dates: start: 20240313
  56. OMEPRAZOLE [Concomitant]
     Active Substance: OMEPRAZOLE
     Indication: Prophylaxis
     Dates: start: 20240313
  57. ACETAMINOPHEN [Concomitant]
     Active Substance: ACETAMINOPHEN
     Indication: Chest pain
     Dates: start: 20231221, end: 20240428
  58. ACETAMINOPHEN [Concomitant]
     Active Substance: ACETAMINOPHEN
     Route: 048
     Dates: start: 20231221
  59. ONDANSETRON [Concomitant]
     Active Substance: ONDANSETRON
     Indication: Nausea
     Dates: start: 20240403, end: 20240409
  60. TRAZODONE [Concomitant]
     Active Substance: TRAZODONE HYDROCHLORIDE
     Indication: Depression
     Dates: start: 20240406, end: 20240410
  61. NADROPARIN CALCIUM [Concomitant]
     Active Substance: NADROPARIN CALCIUM
     Indication: Prophylaxis
     Dates: start: 20240408, end: 20240410
  62. MINERAL OIL [Concomitant]
     Active Substance: MINERAL OIL
     Indication: Constipation
     Dates: start: 20240408
  63. SODIUM PICOSULFATE [Concomitant]
     Active Substance: SODIUM PICOSULFATE
     Indication: Constipation
     Dates: start: 20240408, end: 20240409
  64. PEGFILGRASTIM [Concomitant]
     Active Substance: PEGFILGRASTIM
     Indication: Neutrophil count decreased
     Dates: start: 20240417, end: 20240417
  65. ACETAMINOPHEN [Concomitant]
     Active Substance: ACETAMINOPHEN
     Indication: Atelectasis
     Dates: start: 20240422, end: 20240429

REACTIONS (2)
  - General physical condition abnormal [Recovered/Resolved]
  - Atelectasis [Not Recovered/Not Resolved]

NARRATIVE: CASE EVENT DATE: 20240330
